FAERS Safety Report 10154578 (Version 1)
Quarter: 2014Q2

REPORT INFORMATION
  Report Type: Spontaneous
  Country: US (occurrence: None)
  Receive Date: 20140505
  Receipt Date: 20140505
  Transmission Date: 20141212
  Serious: Yes (Hospitalization)
  Sender: FDA-Public Use
  Company Number: None

PATIENT
  Age: 80 Year
  Sex: Female

DRUGS (14)
  1. DABIGATRAN [Suspect]
     Indication: ATRIAL FIBRILLATION
     Route: 048
     Dates: start: 20130111
  2. VITAMIN D [Concomitant]
  3. DABIGATRAN [Concomitant]
  4. EZETIMIBE [Concomitant]
  5. HYDROCHLOROTHIAZIDE [Concomitant]
  6. ISOSORBIDE MONONITRATE [Concomitant]
  7. LEVOTHYROXINE [Concomitant]
  8. LOSARTAN [Concomitant]
  9. METOPROLOL TARTRATE [Concomitant]
  10. NITROGLYCERIN [Concomitant]
  11. FISH OIL [Concomitant]
  12. OMEPRAZOLE [Concomitant]
  13. ONDANSETRON [Concomitant]
  14. POTASSIUM [Concomitant]

REACTIONS (1)
  - Deep vein thrombosis [None]
